FAERS Safety Report 5624097-6 (Version None)
Quarter: 2008Q1

REPORT INFORMATION
  Report Type: 
  Country: None (occurrence: None)
  Receive Date: 20080213
  Receipt Date: 20070828
  Transmission Date: 20080703
  Serious: No
  Sender: FDA-Public Use
  Company Number: US-KINGPHARMUSA00001-K200701117

PATIENT

DRUGS (5)
  1. EPIPEN [Suspect]
     Indication: ARTHROPOD STING
     Dosage: .3 MG, SINGLE
     Dates: start: 20070827, end: 20070827
  2. EPIPEN [Suspect]
     Dosage: .3 MG, SINGLE
  3. ATENOLOL [Concomitant]
     Indication: CARDIAC DISORDER
     Route: 048
  4. CARDIZEM [Concomitant]
     Indication: CARDIAC DISORDER
     Route: 048
  5. DIGITEK [Concomitant]
     Indication: CARDIAC DISORDER
     Route: 048

REACTIONS (1)
  - DRUG INEFFECTIVE [None]
